FAERS Safety Report 10500580 (Version 1)
Quarter: 2014Q4

REPORT INFORMATION
  Report Type: Spontaneous
  Country: GB (occurrence: US)
  Receive Date: 20141006
  Receipt Date: 20141006
  Transmission Date: 20150528
  Serious: No
  Sender: FDA-Public Use
  Company Number: GB-AMGEN INC.-GBRSP2014073108

PATIENT
  Sex: Female
  Weight: 46 kg

DRUGS (1)
  1. PROLIA [Suspect]
     Active Substance: DENOSUMAB
     Indication: OSTEOPOROSIS POSTMENOPAUSAL
     Dosage: UNK
     Route: 065

REACTIONS (8)
  - Mobility decreased [Unknown]
  - Premature menopause [Unknown]
  - Back pain [Unknown]
  - Spinal deformity [Unknown]
  - Body height decreased [Unknown]
  - General physical health deterioration [Unknown]
  - Bone density decreased [Unknown]
  - Activities of daily living impaired [Unknown]
